FAERS Safety Report 6055613-0 (Version None)
Quarter: 2009Q1

REPORT INFORMATION
  Report Type: 
  Country: None (occurrence: None)
  Receive Date: 20090123
  Receipt Date: 20090115
  Transmission Date: 20090719
  Serious: Yes (Hospitalization)
  Sender: FDA-Public Use
  Company Number: CIO09000921

PATIENT
  Age: 4 Month
  Sex: Male

DRUGS (4)
  1. BABYRIB (EUCALYPTUS OIL 129 MG) OINTMENT, 1 APPLIC [Suspect]
     Indication: COUGH
     Dosage: TOPICAL
     Route: 061
     Dates: start: 20081122, end: 20081122
  2. BABYRIB (EUCALYPTUS OIL 129 MG) OINTMENT, 1 APPLIC [Suspect]
     Indication: RHINORRHOEA
     Dosage: TOPICAL
     Route: 061
     Dates: start: 20081122, end: 20081122
  3. VAPOSTEAM [Suspect]
     Indication: COUGH
     Dosage: RESPIRATORY
     Route: 055
     Dates: start: 20081122, end: 20081122
  4. VAPOSTEAM [Suspect]
     Indication: RHINORRHOEA
     Dosage: RESPIRATORY
     Route: 055
     Dates: start: 20081122, end: 20081122

REACTIONS (6)
  - BRONCHIOLITIS [None]
  - CRYING [None]
  - DYSPNOEA [None]
  - INCREASED VISCOSITY OF BRONCHIAL SECRETION [None]
  - PALLOR [None]
  - PNEUMONIA VIRAL [None]
